FAERS Safety Report 7702627-8 (Version None)
Quarter: 2011Q3

REPORT INFORMATION
  Report Type: 
  Country: None (occurrence: None)
  Receive Date: 20110823
  Receipt Date: 20110819
  Transmission Date: 20111222
  Serious: Yes (Death, Life-Threatening, Hospitalization)
  Sender: FDA-Public Use
  Company Number: DE-BRISTOL-MYERS SQUIBB COMPANY-14883953

PATIENT
  Age: 67 Year
  Sex: Female
  Weight: 56 kg

DRUGS (4)
  1. CILENGITIDE [Suspect]
     Indication: HEAD AND NECK CANCER
     Dosage: RECENT DOSE: 23NOV09; DRUG INTERRUPTED 30NOV09
     Route: 042
     Dates: start: 20090921, end: 20091126
  2. CISPLATIN [Suspect]
     Indication: HEAD AND NECK CANCER
     Dosage: RECENT DOSE: 23NOV09; DRUG INTERRUPTED 30NOV09
     Route: 042
     Dates: start: 20090921, end: 20091123
  3. FLUOROURACIL [Suspect]
     Indication: HEAD AND NECK CANCER
     Dosage: RECENT DOSE: 23NOV09; DRUG INTERRUPTED ON 30NOV09
     Route: 042
     Dates: start: 20090921, end: 20091123
  4. CETUXIMAB [Suspect]
     Indication: HEAD AND NECK CANCER
     Dosage: RECENT DOSE 23NOV09; DRUG INTERRUPTED 30NOV09; 5MG/ML
     Route: 042
     Dates: start: 20090921, end: 20091123

REACTIONS (2)
  - PNEUMONIA [None]
  - ESCHERICHIA SEPSIS [None]
